FAERS Safety Report 14380404 (Version 7)
Quarter: 2018Q3

REPORT INFORMATION
  Report Type: Spontaneous
  Country: US (occurrence: US)
  Receive Date: 20180112
  Receipt Date: 20180823
  Transmission Date: 20181010
  Serious: Yes (Other)
  Sender: FDA-Public Use
  Company Number: US-PFIZER INC-2018015077

PATIENT
  Age: 78 Year
  Sex: Female
  Weight: 74.84 kg

DRUGS (5)
  1. IBRANCE [Suspect]
     Active Substance: PALBOCICLIB
     Dosage: 100 MG, CYCLIC (ONCE A DAY 21 DAYS ON, 8 DAYS OFF)
     Route: 048
  2. IBRANCE [Suspect]
     Active Substance: PALBOCICLIB
     Indication: BREAST CANCER METASTATIC
     Dosage: 100 MG, CYCLIC (ONCE A DAY. ON 21 DAYS AND OFF 7 DAYS)
     Route: 048
     Dates: start: 20180104
  3. IBRANCE [Suspect]
     Active Substance: PALBOCICLIB
     Dosage: 75 MG, CYCLIC (ONCE A DAY ON FOR 21 DAYS AND OFF FOR 7 DAYS)
     Route: 048
  4. IBRANCE [Suspect]
     Active Substance: PALBOCICLIB
     Dosage: 75 MG, UNK
     Route: 048
  5. IBRANCE [Suspect]
     Active Substance: PALBOCICLIB
     Dosage: 100 MG, UNK
     Route: 048
     Dates: start: 201804

REACTIONS (12)
  - Sleep disorder [Not Recovered/Not Resolved]
  - Frustration tolerance decreased [Unknown]
  - White blood cell count decreased [Not Recovered/Not Resolved]
  - Condition aggravated [Not Recovered/Not Resolved]
  - Spinal disorder [Unknown]
  - Product use issue [Unknown]
  - Loss of consciousness [Unknown]
  - Fatigue [Unknown]
  - Bone pain [Recovered/Resolved]
  - Deafness [Unknown]
  - Malaise [Recovering/Resolving]
  - Myalgia [Recovered/Resolved]

NARRATIVE: CASE EVENT DATE: 2018
